FAERS Safety Report 16091785 (Version 2)
Quarter: 2019Q1

REPORT INFORMATION
  Report Type: Spontaneous
  Country: FR (occurrence: FR)
  Receive Date: 20190319
  Receipt Date: 20190326
  Transmission Date: 20190418
  Serious: Yes (Other)
  Sender: FDA-Public Use
  Company Number: FR-PROVELL PHARMACEUTICALS-2064280

PATIENT
  Age: 81 Year
  Sex: Female

DRUGS (4)
  1. TEMESTA [Concomitant]
  2. KENZEN [Concomitant]
     Active Substance: CANDESARTAN
  3. EUTHYROX [Suspect]
     Active Substance: LEVOTHYROXINE SODIUM
     Indication: HYPOTHYROIDISM
     Dates: start: 20170806
  4. KERLONE [Concomitant]
     Active Substance: BETAXOLOL HYDROCHLORIDE

REACTIONS (14)
  - Dyspnoea [None]
  - Visual impairment [None]
  - Feeling of body temperature change [None]
  - Blood thyroid stimulating hormone increased [None]
  - Muscle spasms [None]
  - Hyperhidrosis [None]
  - Palpitations [Not Recovered/Not Resolved]
  - Insomnia [None]
  - Fatigue [Recovering/Resolving]
  - Apathy [None]
  - Headache [None]
  - Alopecia [Not Recovered/Not Resolved]
  - Hypertension [None]
  - Frequent bowel movements [None]

NARRATIVE: CASE EVENT DATE: 2017
